FAERS Safety Report 7406248-6 (Version None)
Quarter: 2011Q2

REPORT INFORMATION
  Report Type: 
  Country: None (occurrence: None)
  Receive Date: 20110411
  Receipt Date: 20110329
  Transmission Date: 20111010
  Serious: Yes (Other)
  Sender: FDA-Public Use
  Company Number: US-JNJFOC-20110312714

PATIENT
  Age: 3 Year
  Sex: Female

DRUGS (1)
  1. BENGAY GREASELESS [Suspect]
     Indication: PRURITUS
     Route: 061

REACTIONS (3)
  - OFF LABEL USE [None]
  - BURNS SECOND DEGREE [None]
  - WRONG DRUG ADMINISTERED [None]
